FAERS Safety Report 11433831 (Version 1)
Quarter: 2015Q3

REPORT INFORMATION
  Report Type: Spontaneous
  Country: GB (occurrence: GB)
  Receive Date: 20150831
  Receipt Date: 20150831
  Transmission Date: 20151125
  Serious: Yes (Other)
  Sender: FDA-Public Use
  Company Number: GB-ACCORD-033296

PATIENT
  Age: 64 Year
  Sex: Female
  Weight: 86 kg

DRUGS (8)
  1. FLUCLOXACILLIN [Concomitant]
     Active Substance: FLUCLOXACILLIN
     Dates: start: 20150811
  2. NITROFURANTOIN/NITROFURANTOIN SODIUM [Concomitant]
     Dates: start: 20150717, end: 20150724
  3. TRIMETHOPRIM/TRIMETHOPRIM LACTATE/TRIMETHOPRIM SULFATE [Concomitant]
     Dates: start: 20150715, end: 20150722
  4. WARFARIN [Concomitant]
     Active Substance: WARFARIN
     Dosage: TAKE ACCORDING TO THE DOSE SPECIFIED.
     Dates: start: 20140829, end: 20150604
  5. ATENOLOL/ATENOLOL HYDROCHLORIDE [Concomitant]
     Dates: start: 20150420
  6. NAPROXEN. [Concomitant]
     Active Substance: NAPROXEN
     Dates: start: 20150717
  7. OMEPRAZOLE. [Concomitant]
     Active Substance: OMEPRAZOLE
     Dates: start: 20150717
  8. METHOTREXATE [Suspect]
     Active Substance: METHOTREXATE
     Indication: PRODUCT USED FOR UNKNOWN INDICATION
     Dates: start: 20150811

REACTIONS (1)
  - Swelling face [Recovered/Resolved]

NARRATIVE: CASE EVENT DATE: 20150811
